FAERS Safety Report 7492777-6 (Version None)
Quarter: 2011Q2

REPORT INFORMATION
  Report Type: 
  Country: None (occurrence: None)
  Receive Date: 20110519
  Receipt Date: 20110518
  Transmission Date: 20111010
  Serious: Yes (Hospitalization)
  Sender: FDA-Public Use
  Company Number: SK-BAYER-2011-042135

PATIENT
  Sex: Female

DRUGS (1)
  1. ULTRAVIST 150 [Suspect]
     Indication: PRODUCT USED FOR UNKNOWN INDICATION
     Dosage: 50 ML, ONCE
     Dates: start: 20110517, end: 20110517

REACTIONS (4)
  - GENERALISED OEDEMA [None]
  - RASH PUSTULAR [None]
  - RESPIRATORY TRACT OEDEMA [None]
  - SKIN TIGHTNESS [None]
